FAERS Safety Report 5369286-3 (Version None)
Quarter: 2007Q2

REPORT INFORMATION
  Report Type: 
  Country: None (occurrence: None)
  Receive Date: 20070625
  Receipt Date: 20070404
  Transmission Date: 20071010
  Serious: No
  Sender: FDA-Public Use
  Company Number: US-ASTRAZENECA-2007UW03302

PATIENT
  Age: 50 Year
  Sex: Female
  Weight: 97.5 kg

DRUGS (3)
  1. CRESTOR [Suspect]
     Indication: HYPERLIPIDAEMIA
     Route: 048
     Dates: start: 20040209, end: 20070221
  2. LEXAPRO [Concomitant]
     Indication: DEPRESSION
     Dates: start: 20030203
  3. SYNTHROID [Concomitant]
     Indication: HYPOTHYROIDISM
     Route: 048
     Dates: start: 19770101

REACTIONS (1)
  - VULVOVAGINAL PRURITUS [None]
